FAERS Safety Report 16157462 (Version 2)
Quarter: 2019Q2

REPORT INFORMATION
  Report Type: Spontaneous
  Country: US (occurrence: US)
  Receive Date: 20190404
  Receipt Date: 20190531
  Transmission Date: 20190711
  Serious: No
  Sender: FDA-Public Use
  Company Number: US-PFIZER INC-2019137453

PATIENT
  Age: 66 Year
  Sex: Female
  Weight: 72.57 kg

DRUGS (1)
  1. XELJANZ XR [Suspect]
     Active Substance: TOFACITINIB CITRATE
     Indication: RHEUMATOID ARTHRITIS
     Dosage: 11 MG, 1X/DAY
     Route: 048
     Dates: start: 201711, end: 20190301

REACTIONS (2)
  - Herpes zoster [Recovered/Resolved with Sequelae]
  - Myalgia [Recovered/Resolved]

NARRATIVE: CASE EVENT DATE: 201901
